FAERS Safety Report 24948855 (Version 1)
Quarter: 2025Q1

REPORT INFORMATION
  Report Type: Report from Study
  Country: US (occurrence: US)
  Receive Date: 20250210
  Receipt Date: 20250210
  Transmission Date: 20250409
  Serious: Yes (Other)
  Sender: MYLAN
  Company Number: US-MYLANLABS-2025M1009216

PATIENT
  Age: 3 Decade
  Sex: Male

DRUGS (1)
  1. ESTRADIOL [Suspect]
     Active Substance: ESTRADIOL
     Indication: Gender reassignment therapy
     Dosage: 2 MILLIGRAM, QD
     Route: 048

REACTIONS (2)
  - Pancreatitis acute [Unknown]
  - Off label use [Unknown]
